FAERS Safety Report 6111788-6 (Version None)
Quarter: 2009Q1

REPORT INFORMATION
  Report Type: 
  Country: None (occurrence: None)
  Receive Date: 20090311
  Receipt Date: 20090305
  Transmission Date: 20090719
  Serious: Yes (Hospitalization)
  Sender: FDA-Public Use
  Company Number: US-ABBOTT-09P-163-0560623-00

PATIENT
  Age: 54 Year
  Sex: Female
  Weight: 56.75 kg

DRUGS (6)
  1. NIASPAN [Suspect]
     Indication: BLOOD TRIGLYCERIDES INCREASED
     Dosage: UNKNOWN
     Dates: start: 20060101, end: 20070101
  2. NIASPAN [Suspect]
     Dates: start: 20080101, end: 20090212
  3. NIASPAN [Suspect]
     Dates: start: 20081001
  4. ASPIRIN [Concomitant]
     Indication: DRUG USE FOR UNKNOWN INDICATION
     Dates: start: 20081001, end: 20090212
  5. LISINOPRIL [Concomitant]
     Indication: HYPERTENSION
     Dosage: UNKNOWN
  6. SYNTHROID [Concomitant]
     Indication: HYPOTHYROIDISM

REACTIONS (4)
  - ABSCESS [None]
  - BLOOD GLUCOSE INCREASED [None]
  - FLUSHING [None]
  - UTERINE LEIOMYOMA [None]
